FAERS Safety Report 9958538 (Version 2)
Quarter: 2014Q3

REPORT INFORMATION
  Report Type: Spontaneous
  Country: US (occurrence: US)
  Receive Date: 20140305
  Receipt Date: 20140915
  Transmission Date: 20150326
  Serious: Yes (Hospitalization, Other)
  Sender: FDA-Public Use
  Company Number: 2014SP001081

PATIENT
  Age: 60 Year
  Sex: Female
  Weight: 66 kg

DRUGS (10)
  1. LORAZEPAM. [Concomitant]
     Active Substance: LORAZEPAM
     Dates: start: 20130618, end: 20131226
  2. DOXORUBICIN [Suspect]
     Active Substance: DOXORUBICIN
     Indication: SARCOMA
     Dates: start: 20130606
  3. PROCHLORPERAZINE. [Concomitant]
     Active Substance: PROCHLORPERAZINE
     Dates: start: 20130627, end: 20131226
  4. GEMCITABINE HCL [Concomitant]
     Active Substance: GEMCITABINE HYDROCHLORIDE
     Dates: start: 20130718, end: 20131004
  5. DEXAMETHASONE. [Concomitant]
     Active Substance: DEXAMETHASONE
     Dates: start: 20130718, end: 20131226
  6. DOCETAXEL [Concomitant]
     Active Substance: DOCETAXEL
     Dates: start: 20130725, end: 20131004
  7. DOCUSATE [Concomitant]
     Active Substance: DOCUSATE
  8. DOXORUBICIN [Suspect]
     Active Substance: DOXORUBICIN
     Indication: SARCOMA
     Route: 040
     Dates: start: 20130627, end: 20130627
  9. NYSTATIN. [Concomitant]
     Active Substance: NYSTATIN
     Dates: start: 20130729, end: 20131107
  10. HYOSCINE [Concomitant]
     Active Substance: SCOPOLAMINE
     Dates: start: 20130702, end: 20131226

REACTIONS (9)
  - Dizziness [Recovered/Resolved]
  - Nausea [Unknown]
  - Presyncope [Recovered/Resolved]
  - Tachycardia [Unknown]
  - Proctalgia [Unknown]
  - Hypotension [Unknown]
  - Platelet count decreased [Recovering/Resolving]
  - Anal haemorrhage [Unknown]
  - Constipation [Unknown]

NARRATIVE: CASE EVENT DATE: 20130731
